FAERS Safety Report 13584243 (Version 1)
Quarter: 2017Q2

REPORT INFORMATION
  Report Type: Spontaneous
  Country: US (occurrence: US)
  Receive Date: 20170525
  Receipt Date: 20170525
  Transmission Date: 20170830
  Serious: Yes (Other)
  Sender: FDA-Public Use
  Company Number: None

PATIENT
  Age: 52 Year
  Sex: Female

DRUGS (1)
  1. ZILEUTON ER [Suspect]
     Active Substance: ZILEUTON
     Indication: ASTHMA
     Route: 048

REACTIONS (4)
  - Product substitution issue [None]
  - Gait disturbance [None]
  - Dizziness [None]
  - Impaired driving ability [None]

NARRATIVE: CASE EVENT DATE: 20170525
